FAERS Safety Report 15193096 (Version 1)
Quarter: 2018Q3

REPORT INFORMATION
  Report Type: Spontaneous
  Country: US (occurrence: US)
  Receive Date: 20180725
  Receipt Date: 20180725
  Transmission Date: 20181010
  Serious: No
  Sender: FDA-Public Use
  Company Number: US-SHIRE-US201827022

PATIENT
  Sex: Female

DRUGS (1)
  1. XIIDRA [Suspect]
     Active Substance: LIFITEGRAST
     Indication: DRY EYE
     Dosage: 1 GTT BOTH EYES, 2X/DAY:BID
     Route: 047
     Dates: start: 20180710

REACTIONS (2)
  - Instillation site pain [Unknown]
  - Product taste abnormal [Unknown]
